FAERS Safety Report 6095995-7 (Version None)
Quarter: 2009Q1

REPORT INFORMATION
  Report Type: 
  Country: None (occurrence: None)
  Receive Date: 20090227
  Receipt Date: 20080804
  Transmission Date: 20090719
  Serious: No
  Sender: FDA-Public Use
  Company Number: A0740913A

PATIENT
  Age: 5 Year
  Sex: Male

DRUGS (2)
  1. LAMICTAL [Suspect]
     Indication: ATTENTION DEFICIT/HYPERACTIVITY DISORDER
     Dosage: 25MG PER DAY
     Route: 048
     Dates: start: 20080620
  2. NO CONCURRENT MEDICATION [Concomitant]

REACTIONS (4)
  - RASH [None]
  - RASH PUSTULAR [None]
  - STAPHYLOCOCCAL INFECTION [None]
  - TINEA INFECTION [None]
